FAERS Safety Report 7626888-9 (Version None)
Quarter: 2011Q3

REPORT INFORMATION
  Report Type: 
  Country: None (occurrence: None)
  Receive Date: 20110721
  Receipt Date: 20110714
  Transmission Date: 20111222
  Serious: Yes (Hospitalization)
  Sender: FDA-Public Use
  Company Number: US-BAYER-2011-005045

PATIENT
  Age: 23 Year
  Sex: Female
  Weight: 61 kg

DRUGS (1)
  1. YAZ [Suspect]
     Dosage: UNK
     Dates: start: 20070801, end: 20080101

REACTIONS (2)
  - GALLBLADDER DISORDER [None]
  - PAIN [None]
